FAERS Safety Report 16711045 (Version 1)
Quarter: 2019Q3

REPORT INFORMATION
  Report Type: Spontaneous
  Country: DE (occurrence: DE)
  Receive Date: 20190816
  Receipt Date: 20190816
  Transmission Date: 20191004
  Serious: Yes (Other)
  Sender: FDA-Public Use
  Company Number: DE-BAYER-2019-150110

PATIENT
  Age: 29 Year
  Sex: Female
  Weight: 84 kg

DRUGS (2)
  1. MIRENA [Suspect]
     Active Substance: LEVONORGESTREL
  2. MIRENA [Suspect]
     Active Substance: LEVONORGESTREL
     Dosage: 20 MCG/24HR, CONT
     Route: 015
     Dates: start: 20180630

REACTIONS (6)
  - Weight fluctuation [None]
  - Migraine with aura [None]
  - Heart rate irregular [None]
  - Depression suicidal [None]
  - Dizziness [None]
  - Menstrual disorder [None]

NARRATIVE: CASE EVENT DATE: 20180730
